FAERS Safety Report 22377704 (Version 1)
Quarter: 2023Q2

REPORT INFORMATION
  Report Type: Spontaneous
  Country: US (occurrence: US)
  Receive Date: 20230529
  Receipt Date: 20230529
  Transmission Date: 20230722
  Serious: No
  Sender: FDA-Public Use
  Company Number: US-SA-SAC20230525000406

PATIENT
  Age: 61 Year
  Sex: Female
  Weight: 85 kg

DRUGS (1)
  1. DUPIXENT [Suspect]
     Active Substance: DUPILUMAB
     Indication: Dermatitis atopic
     Dosage: 300 MG, QOW
     Route: 058
     Dates: start: 20230403

REACTIONS (5)
  - Dry skin [Recovering/Resolving]
  - Skin haemorrhage [Recovering/Resolving]
  - Insomnia [Recovering/Resolving]
  - Pruritus [Recovering/Resolving]
  - Therapeutic response shortened [Unknown]

NARRATIVE: CASE EVENT DATE: 20230101
